FAERS Safety Report 23334964 (Version 1)
Quarter: 2023Q4

REPORT INFORMATION
  Report Type: Spontaneous
  Country: US (occurrence: US)
  Receive Date: 20231225
  Receipt Date: 20231225
  Transmission Date: 20240110
  Serious: Yes (Other)
  Sender: FDA-Public Use
  Company Number: US-ENDO PHARMACEUTICALS INC-2023-006158

PATIENT
  Age: 20 Year
  Sex: Female

DRUGS (9)
  1. ADRENALIN [Suspect]
     Active Substance: EPINEPHRINE
     Indication: Hypotension
     Dosage: 1 MCG/MIN, INFUSION (TRANSITIONED TO EPINEPHRINE FROM NOREPINEPHRINE)
     Route: 041
  2. ADRENALIN [Suspect]
     Active Substance: EPINEPHRINE
     Dosage: 0.5 MCG/MIN, INFUSION (INITIAL DOSE/RE-ATTEMPTED SLOW TITRATED DOSE WAS INCREASED EVERY TWO MINUTES)
     Route: 041
  3. ADRENALIN [Suspect]
     Active Substance: EPINEPHRINE
     Dosage: 1 MCG/MIN, INFUSION
     Route: 041
  4. ADRENALIN [Suspect]
     Active Substance: EPINEPHRINE
     Dosage: 2 MCG/MIN, INFUSION
     Route: 041
  5. ADRENALIN [Suspect]
     Active Substance: EPINEPHRINE
     Dosage: 3 MCG/MIN, INFUSION
     Route: 041
  6. ADRENALIN [Suspect]
     Active Substance: EPINEPHRINE
     Dosage: 4 MCG/MIN, INFUSION
     Route: 041
  7. ADRENALIN [Suspect]
     Active Substance: EPINEPHRINE
     Dosage: 6 MCG/MIN, INFUSION
     Route: 041
  8. NOREPINEPHRINE [Suspect]
     Active Substance: NOREPINEPHRINE
     Indication: Hypotension
     Dosage: 4 MCG/MIN, INFUSION (INITIAL DOSE)
     Route: 041
  9. NOREPINEPHRINE [Suspect]
     Active Substance: NOREPINEPHRINE
     Dosage: 4 MCG/MIN, INFUSION (RE-CHALLANGED)
     Route: 041

REACTIONS (1)
  - Bradycardia [Recovered/Resolved]
